FAERS Safety Report 4479336-4 (Version None)
Quarter: 2004Q4

REPORT INFORMATION
  Report Type: 
  Country: None (occurrence: None)
  Receive Date: 20041015
  Receipt Date: 20040930
  Transmission Date: 20050328
  Serious: Yes (Hospitalization)
  Sender: FDA-Public Use
  Company Number: WAES 401USA50103

PATIENT
  Age: 71 Year
  Sex: Male
  Weight: 61.6892 kg

DRUGS (8)
  1. TAB ROFECOXIB 25 MG [Suspect]
     Indication: NEOPLASM PROPHYLAXIS
     Dosage: 25 MG/DAILY/PO
     Route: 048
     Dates: start: 20031023, end: 20031225
  2. CALCIUM (UNSPECIFIED) [Concomitant]
  3. DILTIAZEM HYDROCHLORIDE [Concomitant]
  4. HYDROCHLOROTHIAZIDE [Concomitant]
  5. LISINOPRIL [Concomitant]
  6. POTASSIUM CHLORIDE [Concomitant]
  7. PROPRANOLOL HYDROCHLORIDE [Concomitant]
  8. VITAMINS (UNSPECIFIED) [Concomitant]

REACTIONS (8)
  - BRADYCARDIA [None]
  - ERYTHEMA [None]
  - GASTRIC DISORDER [None]
  - HAEMATOCRIT DECREASED [None]
  - HAEMOGLOBIN DECREASED [None]
  - NEUTROPHIL COUNT INCREASED [None]
  - UPPER GASTROINTESTINAL HAEMORRHAGE [None]
  - VARICES OESOPHAGEAL [None]
